FAERS Safety Report 22953424 (Version 5)
Quarter: 2024Q4

REPORT INFORMATION
  Report Type: Spontaneous
  Country: JP (occurrence: JP)
  Receive Date: 20230918
  Receipt Date: 20241106
  Transmission Date: 20250115
  Serious: Yes (Hospitalization, Other)
  Sender: ASTELLAS
  Company Number: JP-ASTELLAS-2023JP004210

PATIENT
  Age: 8 Decade
  Sex: Male
  Weight: 48 kg

DRUGS (10)
  1. PADCEV [Suspect]
     Active Substance: ENFORTUMAB VEDOTIN-EJFV
     Indication: Bladder cancer
     Dosage: 60MG
     Route: 042
     Dates: start: 20230113, end: 20230127
  2. PADCEV [Suspect]
     Active Substance: ENFORTUMAB VEDOTIN-EJFV
     Dosage: 60MG
     Route: 042
     Dates: start: 20230214, end: 20230330
  3. PADCEV [Suspect]
     Active Substance: ENFORTUMAB VEDOTIN-EJFV
     Dosage: 60MG
     Route: 042
     Dates: start: 20230417, end: 20230501
  4. PADCEV [Suspect]
     Active Substance: ENFORTUMAB VEDOTIN-EJFV
     Dosage: 60MG
     Route: 042
     Dates: start: 20230522, end: 20230605
  5. PADCEV [Suspect]
     Active Substance: ENFORTUMAB VEDOTIN-EJFV
     Dosage: 60MG
     Route: 042
     Dates: start: 20230703, end: 20230718
  6. PANTETHINE [Concomitant]
     Active Substance: PANTETHINE
     Indication: Product used for unknown indication
     Dosage: (200) 3T 3XN
     Route: 065
  7. MAGNESIUM OXIDE [Concomitant]
     Active Substance: MAGNESIUM OXIDE
     Indication: Product used for unknown indication
     Dosage: (250) 3T 3XN
     Route: 065
  8. NIFEDIPINE [Concomitant]
     Active Substance: NIFEDIPINE
     Indication: Product used for unknown indication
     Dosage: (20) 1T 1 X MORNING N
     Route: 065
  9. FAMOTIDINE [Concomitant]
     Active Substance: FAMOTIDINE
     Indication: Product used for unknown indication
     Dosage: (20) 1T 1 X MORNING N
     Route: 065
  10. BROTIZOLAM [Concomitant]
     Active Substance: BROTIZOLAM
     Indication: Product used for unknown indication
     Dosage: (0.25) 1T 1X VDS
     Route: 065

REACTIONS (5)
  - Thalamus haemorrhage [Recovered/Resolved]
  - Metastases to central nervous system [Unknown]
  - Malaise [Not Recovered/Not Resolved]
  - Taste disorder [Not Recovered/Not Resolved]
  - Inappropriate schedule of product administration [Unknown]

NARRATIVE: CASE EVENT DATE: 20230214
